FAERS Safety Report 24730424 (Version 1)
Quarter: 2024Q4

REPORT INFORMATION
  Report Type: Spontaneous
  Country: CN (occurrence: CN)
  Receive Date: 20241213
  Receipt Date: 20241213
  Transmission Date: 20250115
  Serious: Yes (Hospitalization)
  Sender: NOVITIUM PHARMA
  Company Number: CN-NOVITIUMPHARMA-2024CNNVP02822

PATIENT
  Age: 71 Year
  Sex: Female

DRUGS (8)
  1. PREDNISONE [Suspect]
     Active Substance: PREDNISONE
     Indication: Immunosuppressant drug therapy
  2. PREDNISONE [Suspect]
     Active Substance: PREDNISONE
     Dosage: DOSE INCREASED
  3. CYCLOSPORINE [Concomitant]
     Active Substance: CYCLOSPORINE
     Indication: Immunosuppressant drug therapy
  4. MIZORIBINE [Concomitant]
     Active Substance: MIZORIBINE
     Indication: Immunosuppressant drug therapy
  5. TISLELIZUMAB [Concomitant]
     Active Substance: TISLELIZUMAB
     Indication: Bladder transitional cell carcinoma stage III
  6. CEFOPERAZONE [Concomitant]
     Active Substance: CEFOPERAZONE
     Indication: Product used for unknown indication
  7. METHYLPREDNISOLONE [Concomitant]
     Active Substance: METHYLPREDNISOLONE
     Indication: Product used for unknown indication
  8. SULFAMETHOXAZOLE\TRIMETHOPRIM [Concomitant]
     Active Substance: SULFAMETHOXAZOLE\TRIMETHOPRIM
     Indication: Antibiotic prophylaxis

REACTIONS (3)
  - Cytomegalovirus infection [Unknown]
  - Epstein-Barr virus infection [Unknown]
  - BK virus infection [Unknown]
